FAERS Safety Report 6425583-1 (Version None)
Quarter: 2009Q4

REPORT INFORMATION
  Report Type: 
  Country: None (occurrence: None)
  Receive Date: 20091103
  Receipt Date: 20091029
  Transmission Date: 20100525
  Serious: Yes (Death)
  Sender: FDA-Public Use
  Company Number: BR-ABBOTT-09P-020-0605726-00

PATIENT
  Sex: Male
  Weight: 87 kg

DRUGS (12)
  1. HUMIRA [Suspect]
     Indication: PSORIATIC ARTHROPATHY
     Route: 058
     Dates: start: 20090101, end: 20090801
  2. LACRIMA PLUS [Concomitant]
     Indication: PROPHYLAXIS
     Route: 047
     Dates: start: 20080101, end: 20090804
  3. NEOSORO [Concomitant]
     Indication: NASAL CONGESTION
     Route: 045
     Dates: end: 20090804
  4. AMOXICILLIN [Concomitant]
     Indication: DRUG USE FOR UNKNOWN INDICATION
     Route: 048
     Dates: end: 20090804
  5. STILL [Concomitant]
     Indication: DRUG USE FOR UNKNOWN INDICATION
     Route: 048
     Dates: end: 20090804
  6. EPITEZAN [Concomitant]
     Indication: DRUG USE FOR UNKNOWN INDICATION
     Route: 048
     Dates: end: 20090804
  7. TOBRADEX [Concomitant]
     Indication: DRUG USE FOR UNKNOWN INDICATION
     Route: 048
     Dates: end: 20090804
  8. BROMAZEPAM [Concomitant]
     Indication: DRUG USE FOR UNKNOWN INDICATION
     Route: 048
     Dates: end: 20090804
  9. MAGNESIA BISURADA [Concomitant]
     Indication: GASTRIC DISORDER
     Dosage: SPORADICALLY
     Route: 048
     Dates: end: 20090804
  10. CEFAGEL [Concomitant]
     Indication: DRUG USE FOR UNKNOWN INDICATION
     Route: 048
     Dates: end: 20090804
  11. EPHYNAL [Concomitant]
     Indication: VITAMIN SUPPLEMENTATION
     Dates: end: 20090804
  12. AMLODIPINE [Concomitant]
     Indication: HYPERTENSION
     Route: 048
     Dates: end: 20090804

REACTIONS (3)
  - ANGINA PECTORIS [None]
  - MYOCARDIAL INFARCTION [None]
  - RESPIRATORY ARREST [None]
